FAERS Safety Report 15049810 (Version 1)
Quarter: 2018Q3

REPORT INFORMATION
  Report Type: Spontaneous
  Country: RO (occurrence: RO)
  Receive Date: 20180622
  Receipt Date: 20180622
  Transmission Date: 20181010
  Serious: Yes (Hospitalization)
  Sender: FDA-Public Use
  Company Number: PHHY2018RO026823

PATIENT
  Age: 28 Year
  Sex: Female

DRUGS (6)
  1. FLAMEXIN [Suspect]
     Active Substance: PIROXICAM BETADEX
     Indication: PHARYNGITIS
     Dosage: 1 DF, QD (1 SACHET/DAY)
     Route: 048
  2. OSPAMOX [Suspect]
     Active Substance: AMOXICILLIN
     Indication: PHARYNGITIS
  3. FLAMEXIN [Suspect]
     Active Substance: PIROXICAM BETADEX
     Indication: TONSILLITIS
  4. OSPAMOX [Suspect]
     Active Substance: AMOXICILLIN
     Indication: TONSILLITIS
     Dosage: 1000 MG, Q48H
     Route: 048
     Dates: start: 20180306, end: 20180311
  5. EURESPAL [Suspect]
     Active Substance: FENSPIRIDE HYDROCHLORIDE
     Indication: TONSILLITIS
     Dosage: 80 MG, Q48H
     Route: 048
     Dates: start: 20180306, end: 20180311
  6. EURESPAL [Suspect]
     Active Substance: FENSPIRIDE HYDROCHLORIDE
     Indication: PHARYNGITIS

REACTIONS (3)
  - Rash generalised [Recovered/Resolved]
  - Rash papular [Recovered/Resolved]
  - Pruritus [Recovered/Resolved]

NARRATIVE: CASE EVENT DATE: 20180320
